FAERS Safety Report 12484027 (Version 1)
Quarter: 2016Q2

REPORT INFORMATION
  Report Type: Spontaneous
  Country: FR (occurrence: FR)
  Receive Date: 20160621
  Receipt Date: 20160621
  Transmission Date: 20160815
  Serious: Yes (Other)
  Sender: FDA-Public Use
  Company Number: FR-ASTRAZENECA-2016SE66928

PATIENT
  Age: 83 Year
  Sex: Male

DRUGS (7)
  1. DAFLON [Concomitant]
     Active Substance: DIOSMIN\HESPERIDIN
  2. STILNOX [Concomitant]
     Active Substance: ZOLPIDEM TARTRATE
  3. CELEBREX [Concomitant]
     Active Substance: CELECOXIB
  4. SPIRIVA [Concomitant]
     Active Substance: TIOTROPIUM BROMIDE MONOHYDRATE
  5. VITAMINE D [Concomitant]
  6. VIAGRA [Concomitant]
     Active Substance: SILDENAFIL CITRATE
  7. INEXIUM [Suspect]
     Active Substance: ESOMEPRAZOLE
     Route: 048

REACTIONS (1)
  - Pneumonia [Recovered/Resolved]

NARRATIVE: CASE EVENT DATE: 2014
